FAERS Safety Report 6710605-0 (Version None)
Quarter: 2010Q2

REPORT INFORMATION
  Report Type: 
  Country: None (occurrence: None)
  Receive Date: 20100430
  Receipt Date: 20100421
  Transmission Date: 20101027
  Serious: Yes (Other)
  Sender: FDA-Public Use
  Company Number: 1000012829

PATIENT
  Age: 92 Year
  Sex: Female
  Weight: 50 kg

DRUGS (5)
  1. MEMANTINE HCL [Suspect]
     Indication: ABNORMAL BEHAVIOUR
     Dosage: PROGRESSIVELY INCREASED TO 20 MG DAILY,ORAL
     Route: 048
     Dates: start: 20100205
  2. MEMANTINE HCL [Suspect]
     Indication: ABNORMAL BEHAVIOUR
     Dosage: 20 MG (20 MG,1 IN 1 D),ORAL
     Route: 048
     Dates: end: 20100308
  3. ARICEPT [Concomitant]
  4. MEPRONIZINE [Concomitant]
  5. CITALOPRAM HYDROBROMIDE [Concomitant]

REACTIONS (3)
  - ABNORMAL BEHAVIOUR [None]
  - CONDITION AGGRAVATED [None]
  - DISORIENTATION [None]
